FAERS Safety Report 18113294 (Version 1)
Quarter: 2020Q3

REPORT INFORMATION
  Report Type: Spontaneous
  Country: US (occurrence: US)
  Receive Date: 20200805
  Receipt Date: 20200805
  Transmission Date: 20201103
  Serious: No
  Sender: FDA-Public Use
  Company Number: US-PFIZER INC-2020186977

PATIENT
  Age: 80 Year
  Sex: Male

DRUGS (2)
  1. INLYTA [Suspect]
     Active Substance: AXITINIB
     Indication: NEOPLASM MALIGNANT
     Dosage: 2 MG, 2X/DAY
     Route: 048
     Dates: start: 20200506
  2. KEYTRUDA [Concomitant]
     Active Substance: PEMBROLIZUMAB
     Indication: NEOPLASM MALIGNANT
     Dosage: UNK, CYCLIC, (INFUSION EVERY 3 WEEKS)

REACTIONS (1)
  - Blood pressure abnormal [Unknown]
